APPROVED DRUG PRODUCT: ESTRADIOL
Active Ingredient: ESTRADIOL
Strength: 0.1% (1.25GM/PACKET)
Dosage Form/Route: GEL;TRANSDERMAL
Application: A218507 | Product #005 | TE Code: AB
Applicant: ENCUBE ETHICALS PRIVATE LTD
Approved: Mar 5, 2025 | RLD: No | RS: No | Type: RX